FAERS Safety Report 5598810-0 (Version None)
Quarter: 2008Q1

REPORT INFORMATION
  Report Type: 
  Country: None (occurrence: None)
  Receive Date: 20080122
  Receipt Date: 20080102
  Transmission Date: 20080703
  Serious: No
  Sender: FDA-Public Use
  Company Number: US-BOEHRINGER INGELHEIM PHARMACEUTICALS, INC.-2008-BP-00192BP

PATIENT
  Sex: Female

DRUGS (6)
  1. CATAPRES-TTS-1 [Suspect]
     Indication: HYPERTENSION
     Route: 061
     Dates: start: 20071101, end: 20071231
  2. BENICAR [Concomitant]
  3. GENUVIA [Concomitant]
  4. GLUCOPHAGE [Concomitant]
  5. VASOTEC [Concomitant]
  6. TEMAZEPAM [Concomitant]

REACTIONS (2)
  - OEDEMA PERIPHERAL [None]
  - SOMNOLENCE [None]
